FAERS Safety Report 24318152 (Version 1)
Quarter: 2024Q3

REPORT INFORMATION
  Report Type: Spontaneous
  Country: CN (occurrence: CN)
  Receive Date: 20240913
  Receipt Date: 20240913
  Transmission Date: 20241017
  Serious: Yes (Hospitalization, Disabling, Other)
  Sender: SANOFI AVENTIS
  Company Number: CN-SA-2024SA261958

PATIENT
  Age: 59 Year
  Sex: Male
  Weight: 61.3 kg

DRUGS (5)
  1. ELOXATIN [Suspect]
     Active Substance: OXALIPLATIN
     Indication: Oesophageal carcinoma
     Dosage: 200 MG, 1X
     Route: 041
     Dates: start: 20240821, end: 20240821
  2. GIMERACIL\OTERACIL\TEGAFUR [Suspect]
     Active Substance: GIMERACIL\OTERACIL POTASSIUM\TEGAFUR
     Indication: Oesophageal carcinoma
     Dosage: 60 MG, BID (D1-14 Q21D)
     Route: 048
     Dates: start: 20240821, end: 20240903
  3. SINTILIMAB [Suspect]
     Active Substance: SINTILIMAB
     Indication: Oesophageal carcinoma
     Dosage: 200 MG, 1X
     Route: 041
     Dates: start: 20240821, end: 20240821
  4. SODIUM CHLORIDE [Concomitant]
     Active Substance: SODIUM CHLORIDE
     Indication: Vehicle solution use
     Dosage: 100 ML, 1X
     Route: 041
     Dates: start: 20240821, end: 20240821
  5. DEXTROSE [Concomitant]
     Active Substance: DEXTROSE\DEXTROSE MONOHYDRATE
     Indication: Vehicle solution use
     Dosage: 500 ML, 1X
     Route: 041
     Dates: start: 20240821, end: 20240821

REACTIONS (8)
  - Dermatitis allergic [Recovering/Resolving]
  - Rash [Recovering/Resolving]
  - Pruritus [Unknown]
  - Temperature intolerance [Unknown]
  - Myelosuppression [Unknown]
  - Pyrexia [Unknown]
  - Decreased appetite [Recovering/Resolving]
  - Diarrhoea [Unknown]

NARRATIVE: CASE EVENT DATE: 20240831
